FAERS Safety Report 4459093-8 (Version None)
Quarter: 2004Q3

REPORT INFORMATION
  Report Type: 
  Country: None (occurrence: None)
  Receive Date: 20040927
  Receipt Date: 20040915
  Transmission Date: 20050211
  Serious: Yes (Hospitalization, Other)
  Sender: FDA-Public Use
  Company Number: US-JNJFOC-20040905018

PATIENT
  Age: 77 Year
  Sex: Female

DRUGS (1)
  1. DURAGESIC [Suspect]
     Route: 062
     Dates: start: 20030101

REACTIONS (5)
  - CONDITION AGGRAVATED [None]
  - DRUG WITHDRAWAL SYNDROME [None]
  - MEDICATION ERROR [None]
  - PERIPHERAL VASCULAR DISORDER [None]
  - PETIT MAL EPILEPSY [None]
